FAERS Safety Report 19499943 (Version 1)
Quarter: 2021Q3

REPORT INFORMATION
  Report Type: Report from Study
  Country: None (occurrence: US)
  Receive Date: 20210707
  Receipt Date: 20210707
  Transmission Date: 20211014
  Serious: Yes (Other)
  Sender: FDA-Public Use
  Company Number: US-ABBVIE-21K-163-3975129-00

PATIENT
  Age: 36 Year
  Sex: Female
  Weight: 97.61 kg

DRUGS (4)
  1. HUMIRA [Suspect]
     Active Substance: ADALIMUMAB
     Indication: EPISCLERITIS
     Route: 058
     Dates: start: 202102, end: 202103
  2. HUMIRA [Suspect]
     Active Substance: ADALIMUMAB
     Route: 058
     Dates: start: 20210511, end: 20210608
  3. OMEPRAZOLE. [Concomitant]
     Active Substance: OMEPRAZOLE
     Indication: ANTACID THERAPY
  4. VENTRAL [Concomitant]
     Indication: ABDOMINAL PAIN UPPER

REACTIONS (17)
  - Pyrexia [Recovered/Resolved]
  - Intentional product misuse [Unknown]
  - Headache [Recovering/Resolving]
  - Off label use [Unknown]
  - Toothache [Recovered/Resolved]
  - Pain [Unknown]
  - Nausea [Recovering/Resolving]
  - Autoimmune disorder [Unknown]
  - Gait inability [Unknown]
  - Tooth infection [Recovered/Resolved]
  - Neck pain [Recovering/Resolving]
  - Eye inflammation [Unknown]
  - Burning sensation [Recovering/Resolving]
  - Injection site pain [Recovering/Resolving]
  - Fatigue [Recovering/Resolving]
  - Lymphadenopathy [Recovering/Resolving]
  - Visual impairment [Unknown]

NARRATIVE: CASE EVENT DATE: 2021
